FAERS Safety Report 7736237-3 (Version None)
Quarter: 2011Q3

REPORT INFORMATION
  Report Type: 
  Country: None (occurrence: None)
  Receive Date: 20110908
  Receipt Date: 20110831
  Transmission Date: 20111222
  Serious: Yes (Hospitalization)
  Sender: FDA-Public Use
  Company Number: US-ASTELLAS-2011US005452

PATIENT
  Sex: Male
  Weight: 79 kg

DRUGS (3)
  1. ERLOTINIB HYDROCHLORIDE [Suspect]
     Indication: ACUTE MYELOID LEUKAEMIA
     Dosage: 150 MG, UID/QD
     Route: 048
     Dates: start: 20110824, end: 20110825
  2. ALLOPURINOL [Concomitant]
     Indication: GOUT
     Dosage: UNK
     Route: 065
     Dates: start: 20110810
  3. HYDROXYUREA [Concomitant]
     Indication: WHITE BLOOD CELL COUNT INCREASED
     Dosage: UNK
     Route: 065
     Dates: start: 20110810, end: 20110816

REACTIONS (5)
  - ATELECTASIS [None]
  - PETECHIAE [None]
  - STOMATITIS [None]
  - WHITE BLOOD CELL COUNT INCREASED [None]
  - RASH [None]
